FAERS Safety Report 22175618 (Version 2)
Quarter: 2023Q2

REPORT INFORMATION
  Report Type: Report from Study
  Country: CL (occurrence: CL)
  Receive Date: 20230405
  Receipt Date: 20230519
  Transmission Date: 20230722
  Serious: Yes (Hospitalization, Other)
  Sender: FDA-Public Use
  Company Number: CL-BAYER-2018-198880

PATIENT
  Age: 47 Year
  Sex: Female

DRUGS (4)
  1. VENTAVIS [Suspect]
     Active Substance: ILOPROST
     Indication: Pulmonary hypertension
     Dosage: 2ML EVERY 6 HOURS, 4 TIMES A DAY
     Route: 055
     Dates: start: 20180711, end: 20180814
  2. VENTAVIS [Suspect]
     Active Substance: ILOPROST
     Dosage: 0.5 UNK
     Route: 055
  3. BOSENTAN [Concomitant]
     Active Substance: BOSENTAN
     Indication: Pulmonary hypertension
     Dosage: 125 MG, BID
     Route: 048
  4. SILDENAFIL [Concomitant]
     Active Substance: SILDENAFIL
     Indication: Pulmonary hypertension
     Dosage: 50 MG, TID

REACTIONS (13)
  - Syncope [Recovered/Resolved with Sequelae]
  - Hypoaesthesia [Recovered/Resolved]
  - Headache [Recovered/Resolved]
  - Chills [Recovered/Resolved]
  - Hyperhidrosis [Recovered/Resolved]
  - Syncope [Unknown]
  - Malaise [Unknown]
  - Fall [Unknown]
  - Dizziness [Unknown]
  - Accident [Unknown]
  - Lower limb fracture [Recovering/Resolving]
  - Inappropriate schedule of product administration [Unknown]
  - Product prescribing issue [Unknown]

NARRATIVE: CASE EVENT DATE: 20180101
